FAERS Safety Report 8770496 (Version 1)
Quarter: 2012Q4

REPORT INFORMATION
  Report Type: 
  Country: GB (occurrence: GB)
  Receive Date: 20120906
  Receipt Date: 20120906
  Transmission Date: 20130627
  Serious: Yes (Other)
  Sender: FDA-Public Use
  Company Number: GB-PFIZER INC-2012218342

PATIENT
  Age: 36 Year
  Sex: Female

DRUGS (1)
  1. EFEXOR XL [Suspect]
     Indication: DEPRESSION
     Dosage: 375 mg, UNK
     Route: 050
     Dates: start: 2011, end: 20120703

REACTIONS (2)
  - Abortion spontaneous [Unknown]
  - Exposure during pregnancy [None]
